FAERS Safety Report 4416626-5 (Version None)
Quarter: 2004Q2

REPORT INFORMATION
  Report Type: 
  Country: None (occurrence: None)
  Receive Date: 20040630
  Receipt Date: 20040429
  Transmission Date: 20050107
  Serious: Yes (Hospitalization)
  Sender: FDA-Public Use
  Company Number: ENTC2004-0078

PATIENT
  Age: 88 Year
  Sex: Female
  Weight: 51.7 kg

DRUGS (2)
  1. STALEVO 100 [Suspect]
     Indication: PARKINSON'S DISEASE
     Dosage: 100 TWICE A DAY,
  2. EXELON [Suspect]
     Indication: DEMENTIA
     Dosage: 4.5 MG, 3 IN 1 D, ORAL
     Route: 048
     Dates: start: 20031001

REACTIONS (4)
  - DIARRHOEA [None]
  - NAUSEA [None]
  - URINARY TRACT INFECTION [None]
  - VOMITING [None]
